FAERS Safety Report 5086011-4 (Version None)
Quarter: 2006Q3

REPORT INFORMATION
  Report Type: 
  Country: None (occurrence: None)
  Receive Date: 20060817
  Receipt Date: 20060808
  Transmission Date: 20061208
  Serious: Yes (Other)
  Sender: FDA-Public Use
  Company Number: 2006084290

PATIENT
  Age: 53 Year
  Sex: Male

DRUGS (1)
  1. MARAX [Suspect]
     Indication: DYSPNOEA
     Dosage: (2 IN 1 D), ORAL
     Route: 048
     Dates: start: 19830101

REACTIONS (4)
  - DIZZINESS [None]
  - DRY THROAT [None]
  - LUNG INFECTION [None]
  - PALPITATIONS [None]
